FAERS Safety Report 8355281 (Version 4)
Quarter: 2012Q4

REPORT INFORMATION
  Report Type: 
  Country: US (occurrence: US)
  Receive Date: 20120126
  Receipt Date: 20121024
  Transmission Date: 20130627
  Serious: Yes (Other)
  Sender: FDA-Public Use
  Company Number: US-BAYER-2012-007971

PATIENT
  Age: 48 Year
  Sex: Female
  Weight: 100.23 kg

DRUGS (6)
  1. MIRENA [Suspect]
     Indication: MENORRHAGIA
  2. HCG PILL [Concomitant]
     Indication: WEIGHT ABNORMAL
     Dosage: UNK
     Route: 048
     Dates: start: 201201, end: 20120124
  3. HCG PILL [Concomitant]
     Indication: WEIGHT ABNORMAL
     Dosage: 0.1 mg, UNK
     Dates: start: 20110608, end: 20110614
  4. HCG PILL [Concomitant]
     Indication: WEIGHT ABNORMAL
     Dosage: 0.1 mg, UNK
     Dates: start: 20110608, end: 20110614
  5. VIVELLE-DOT [Concomitant]
     Dosage: 0.1 mg, UNK
     Route: 062
     Dates: start: 20110608, end: 20110614
  6. MIRENA [Suspect]
     Indication: CONTRACEPTION
     Dosage: 20 mcg/24hr, CONT
     Route: 015
     Dates: start: 20110504

REACTIONS (7)
  - Vomiting [Recovered/Resolved]
  - Emotional disorder [None]
  - Depressed mood [Recovered/Resolved]
  - Anxiety [None]
  - Major depression [None]
  - Tearfulness [Recovered/Resolved]
  - Depressed mood [Recovered/Resolved]
